FAERS Safety Report 9413234 (Version 1)
Quarter: 2013Q3

REPORT INFORMATION
  Report Type: Spontaneous
  Country: US (occurrence: US)
  Receive Date: 20130722
  Receipt Date: 20130722
  Transmission Date: 20140515
  Serious: Yes (Other)
  Sender: FDA-Public Use
  Company Number: US-TEVA-420317USA

PATIENT
  Sex: Male

DRUGS (1)
  1. DIDANOSINE [Suspect]

REACTIONS (3)
  - Central nervous system infection [Unknown]
  - Memory impairment [Unknown]
  - Diarrhoea [Unknown]
